FAERS Safety Report 8313985 (Version 5)
Quarter: 2013Q4

REPORT INFORMATION
  Report Type: Report from Study
  Country: DE (occurrence: DE)
  Receive Date: 20111228
  Receipt Date: 20131009
  Transmission Date: 20140711
  Serious: Yes (Hospitalization, Other)
  Sender: FDA-Public Use
  Company Number: DE-JNJFOC-20111208812

PATIENT
  Age: 26 Year
  Sex: Female
  Weight: 101 kg

DRUGS (10)
  1. REMICADE [Suspect]
     Indication: COLITIS ULCERATIVE
     Route: 042
     Dates: start: 20110414, end: 20111117
  2. DECORTIN [Concomitant]
     Indication: COLITIS ULCERATIVE
     Route: 048
  3. PANTOSIL [Concomitant]
     Indication: PROPHYLAXIS
     Route: 048
  4. VALETTE [Concomitant]
     Indication: CONTRACEPTION
     Route: 048
  5. ALL OTHER THERAPEUTIC PRODUCTS [Concomitant]
     Indication: COLITIS ULCERATIVE
     Route: 048
  6. COTRIM FORTE [Concomitant]
     Route: 048
  7. SALOFALK [Concomitant]
     Indication: COLITIS ULCERATIVE
     Route: 048
  8. PREDNISOLONE [Concomitant]
     Indication: COLITIS ULCERATIVE
     Route: 048
  9. FOLSAN [Concomitant]
     Indication: PROPHYLAXIS
     Route: 048
  10. FUROSEMID [Concomitant]
     Route: 048

REACTIONS (1)
  - Acute psychosis [Recovered/Resolved]
